FAERS Safety Report 6839157-1 (Version None)
Quarter: 2010Q3

REPORT INFORMATION
  Report Type: 
  Country: None (occurrence: None)
  Receive Date: 20100714
  Receipt Date: 20100630
  Transmission Date: 20110219
  Serious: Yes (Other)
  Sender: FDA-Public Use
  Company Number: GB-RANBAXY-2010RR-35607

PATIENT
  Age: 16 Year
  Sex: Female

DRUGS (2)
  1. SUMATRIPTAN [Suspect]
     Indication: MIGRAINE
     Dosage: UNK
     Dates: end: 20100101
  2. KEPPRA [Suspect]
     Dosage: 1 G, BID
     Dates: start: 20070101, end: 20100101

REACTIONS (2)
  - MIGRAINE [None]
  - PANCREATITIS [None]
